FAERS Safety Report 6768377-X (Version None)
Quarter: 2010Q2

REPORT INFORMATION
  Report Type: 
  Country: None (occurrence: None)
  Receive Date: 20100614
  Receipt Date: 20100604
  Transmission Date: 20101027
  Serious: Yes (Hospitalization, Other)
  Sender: FDA-Public Use
  Company Number: JP-CEPHALON-2010002405

PATIENT
  Sex: Male

DRUGS (2)
  1. MODAFINIL [Suspect]
     Indication: NARCOLEPSY
     Route: 048
     Dates: start: 20070906, end: 20070925
  2. AMOBAN [Concomitant]
     Indication: INSOMNIA
     Dates: start: 20060511

REACTIONS (3)
  - PALPITATIONS [None]
  - PANIC ATTACK [None]
  - TENSION [None]
